FAERS Safety Report 16710496 (Version 1)
Quarter: 2019Q3

REPORT INFORMATION
  Report Type: Spontaneous
  Country: US (occurrence: US)
  Receive Date: 20190816
  Receipt Date: 20190816
  Transmission Date: 20191004
  Serious: No
  Sender: FDA-Public Use
  Company Number: US-LANNETT COMPANY, INC.-US-2019LAN000924

PATIENT
  Sex: Male

DRUGS (2)
  1. LORATADINE. [Suspect]
     Active Substance: LORATADINE
     Indication: PAIN
     Dosage: 2 TEASPOONS FOR 3 CONSECUTIVE NIGHTS DAILY
     Route: 048
     Dates: start: 20190401, end: 20190403
  2. LORATADINE. [Suspect]
     Active Substance: LORATADINE
     Indication: PYREXIA

REACTIONS (2)
  - Vomiting [Recovered/Resolved]
  - Product taste abnormal [Unknown]

NARRATIVE: CASE EVENT DATE: 20190401
